FAERS Safety Report 11058735 (Version 1)
Quarter: 2015Q2

REPORT INFORMATION
  Report Type: Spontaneous
  Country: US (occurrence: None)
  Receive Date: 20150415
  Receipt Date: 20150415
  Transmission Date: 20150821
  Serious: Yes (Hospitalization)
  Sender: FDA-Public Use
  Company Number: FK201500380

PATIENT
  Age: 53 Year
  Sex: Male
  Weight: 57.61 kg

DRUGS (1)
  1. HEPARIN (MANUFACTURER UNKNOWN) (HEPARIN) (HEPARIN) [Suspect]
     Active Substance: HEPARIN SODIUM
     Indication: HEART TRANSPLANT
     Route: 042

REACTIONS (2)
  - Pulmonary embolism [None]
  - Heparin-induced thrombocytopenia [None]
